FAERS Safety Report 6143484-3 (Version None)
Quarter: 2009Q2

REPORT INFORMATION
  Report Type: 
  Country: None (occurrence: None)
  Receive Date: 20090403
  Receipt Date: 20090331
  Transmission Date: 20091009
  Serious: Yes (Death)
  Sender: FDA-Public Use
  Company Number: PHHY2009GB11959

PATIENT
  Sex: Female

DRUGS (6)
  1. ACLASTA [Suspect]
     Dosage: 5 MG
     Dates: start: 20071209
  2. OMEPRAZOLE [Concomitant]
     Dosage: 20 MG/DAY
     Route: 048
  3. CITALOPRAM [Concomitant]
     Dosage: 20 MG/DAY
  4. LEVOTHYROXINE SODIUM [Concomitant]
     Dosage: 125 MCG/DAY
     Route: 048
  5. ADCAL-D3 [Concomitant]
     Dosage: BD
     Route: 048
     Dates: start: 20071215
  6. WARFARIN SODIUM [Concomitant]
     Indication: DEEP VEIN THROMBOSIS
     Dosage: UNK
     Dates: start: 20071218

REACTIONS (1)
  - LARYNGOSPASM [None]
